FAERS Safety Report 10341778 (Version 4)
Quarter: 2015Q4

REPORT INFORMATION
  Report Type: Report from Study
  Country: BR (occurrence: BR)
  Receive Date: 20140725
  Receipt Date: 20151201
  Transmission Date: 20160304
  Serious: Yes (Hospitalization, Other)
  Sender: FDA-Public Use
  Company Number: BR-ROCHE-1342565

PATIENT
  Sex: Female
  Weight: 82 kg

DRUGS (9)
  1. INSULIN [Concomitant]
     Active Substance: INSULIN NOS
     Indication: DIABETES MELLITUS
  2. ACTEMRA [Suspect]
     Active Substance: TOCILIZUMAB
     Indication: RHEUMATOID ARTHRITIS
     Route: 042
     Dates: start: 20111201
  3. RIVOTRIL [Concomitant]
     Active Substance: CLONAZEPAM
     Dosage: HALF TABLET/DAY
     Route: 065
  4. GLIFAGE [Concomitant]
     Active Substance: METFORMIN HYDROCHLORIDE
  5. LIPITOR [Concomitant]
     Active Substance: ATORVASTATIN CALCIUM
     Route: 065
  6. BENERVA [Concomitant]
     Active Substance: THIAMINE
  7. LOSARTAN. [Concomitant]
     Active Substance: LOSARTAN
     Indication: HYPERTENSION
     Route: 065
  8. CORTISONE [Suspect]
     Active Substance: CORTISONE\HYDROCORTISONE
     Indication: PRODUCT USED FOR UNKNOWN INDICATION
     Route: 065
  9. NPH INSULIN [Concomitant]
     Active Substance: INSULIN BEEF

REACTIONS (5)
  - Osteoarthritis [Recovering/Resolving]
  - Drug dose omission [Unknown]
  - Rash erythematous [Unknown]
  - Pruritus [Unknown]
  - Cataract [Unknown]
